FAERS Safety Report 12053776 (Version 2)
Quarter: 2016Q1

REPORT INFORMATION
  Report Type: Other
  Country: IR (occurrence: IR)
  Receive Date: 20160209
  Receipt Date: 20160209
  Transmission Date: 20160526
  Serious: Yes (Other)
  Sender: FDA-Public Use
  Company Number: IR-DEP_13578_2016

PATIENT
  Age: 3 Year
  Sex: Male

DRUGS (1)
  1. DICLOFENAC [Suspect]
     Active Substance: DICLOFENAC
     Indication: PRODUCT USED FOR UNKNOWN INDICATION
     Dosage: DF
     Route: 030

REACTIONS (6)
  - Hyporeflexia [Unknown]
  - Sciatic nerve injury [Unknown]
  - Peroneal nerve palsy [Unknown]
  - Gait disturbance [Unknown]
  - Sciatic nerve palsy [Unknown]
  - Pain in extremity [Unknown]
